FAERS Safety Report 12702782 (Version 1)
Quarter: 2016Q3

REPORT INFORMATION
  Report Type: Spontaneous
  Country: US (occurrence: US)
  Receive Date: 20160831
  Receipt Date: 20160831
  Transmission Date: 20161109
  Serious: No
  Sender: FDA-Public Use
  Company Number: US-ASTRAZENECA-2016SE65834

PATIENT
  Sex: Male

DRUGS (3)
  1. NUPLAZID [Concomitant]
     Active Substance: PIMAVANSERIN TARTRATE
  2. SEROQUEL [Suspect]
     Active Substance: QUETIAPINE FUMARATE
     Route: 048
  3. XANAX [Interacting]
     Active Substance: ALPRAZOLAM
     Route: 065

REACTIONS (2)
  - Parkinson^s disease [Unknown]
  - Drug interaction [Unknown]
